FAERS Safety Report 17429480 (Version 1)
Quarter: 2020Q1

REPORT INFORMATION
  Report Type: Spontaneous
  Country: UG (occurrence: UG)
  Receive Date: 20200218
  Receipt Date: 20200218
  Transmission Date: 20200409
  Serious: Yes (Death, Other)
  Sender: FDA-Public Use
  Company Number: NVSC2020UG042571

PATIENT
  Sex: Female

DRUGS (1)
  1. GLIVEC [Suspect]
     Active Substance: IMATINIB MESYLATE
     Indication: CHRONIC MYELOID LEUKAEMIA
     Dosage: 400 MG, QD (4 X 100 MG)
     Route: 065

REACTIONS (4)
  - Chronic myeloid leukaemia transformation [Unknown]
  - Acute leukaemia [Unknown]
  - Cerebral haemorrhage [Unknown]
  - Death [Fatal]
